FAERS Safety Report 5976327-9 (Version None)
Quarter: 2008Q4

REPORT INFORMATION
  Report Type: 
  Country: None (occurrence: None)
  Receive Date: 20081202
  Receipt Date: 20081124
  Transmission Date: 20090506
  Serious: Yes (Hospitalization)
  Sender: FDA-Public Use
  Company Number: DE-ROXANE LABORATORIES, INC.-2008-RO-00270RO

PATIENT
  Age: 56 Year
  Sex: Female

DRUGS (11)
  1. LITHIUM CARBONATE [Suspect]
     Indication: MANIA
     Dosage: 1125MG
  2. LORAZEPAM [Suspect]
     Dosage: 1MG
  3. CARBAMAZEPINE [Suspect]
  4. IODINE CONTRAST MEDIUM [Suspect]
     Indication: COMPUTERISED TOMOGRAM
  5. PARTOXETINE [Suspect]
  6. OLANZAPINE [Suspect]
  7. OLANZAPINE [Suspect]
     Dosage: 20MG
  8. VENLAFAXINE HCL [Suspect]
     Dosage: 150MG
  9. METHIMAZOLE [Concomitant]
     Indication: THYROID THERAPY
  10. PREDNISOLONE [Concomitant]
     Indication: IMMUNOSUPPRESSANT DRUG THERAPY
  11. ESCITALOPRAM [Concomitant]
     Indication: ANTIDEPRESSANT THERAPY

REACTIONS (11)
  - BEDRIDDEN [None]
  - BULBAR PALSY [None]
  - CACHEXIA [None]
  - DEPRESSION [None]
  - HYPERTHYROIDISM [None]
  - HYPOAESTHESIA [None]
  - IMMOBILE [None]
  - MANIA [None]
  - PSYCHOMOTOR RETARDATION [None]
  - QUADRIPARESIS [None]
  - SUBILEUS [None]
